FAERS Safety Report 5430571-8 (Version None)
Quarter: 2007Q3

REPORT INFORMATION
  Report Type: 
  Country: None (occurrence: None)
  Receive Date: 20070830
  Receipt Date: 20070730
  Transmission Date: 20080115
  Serious: No
  Sender: FDA-Public Use
  Company Number: A0666917A

PATIENT
  Age: 64 Year
  Sex: Male

DRUGS (2)
  1. WELLBUTRIN XL [Suspect]
     Route: 048
  2. ADVAIR DISKUS 100/50 [Concomitant]

REACTIONS (1)
  - RASH PRURITIC [None]
